FAERS Safety Report 6154257-X (Version None)
Quarter: 2009Q2

REPORT INFORMATION
  Report Type: 
  Country: None (occurrence: None)
  Receive Date: 20090414
  Receipt Date: 20090406
  Transmission Date: 20091009
  Serious: Yes (Other)
  Sender: FDA-Public Use
  Company Number: PHHY2009FR13062

PATIENT
  Age: 64 Year
  Sex: Male

DRUGS (4)
  1. PARLODEL [Suspect]
     Indication: NEOPLASM
     Dosage: 2.5 MG/DAY
  2. PARLODEL [Suspect]
     Dosage: 2.5 MG PER WEEK
  3. CABERGOLINE [Suspect]
     Dosage: 0.5 MG WEEKLY
  4. CABERGOLINE [Suspect]
     Dosage: 1 MG WEEKLY

REACTIONS (2)
  - VISUAL FIELD DEFECT [None]
  - VISUAL PATHWAY DISORDER [None]
